FAERS Safety Report 21741481 (Version 3)
Quarter: 2023Q2

REPORT INFORMATION
  Report Type: Spontaneous
  Country: US (occurrence: US)
  Receive Date: 20221216
  Receipt Date: 20230502
  Transmission Date: 20230722
  Serious: No
  Sender: FDA-Public Use
  Company Number: US-PFIZER INC-202200458552

PATIENT
  Age: 59 Year
  Sex: Female

DRUGS (1)
  1. SUTENT [Suspect]
     Active Substance: SUNITINIB MALATE
     Dosage: 37.5 MG, CYCLIC (EVERY DAY. TAKE WHOLE WITH WATER ON DAYS 1-14 OF EACH 21-DAY CYCLE)
     Route: 048

REACTIONS (1)
  - Memory impairment [Unknown]
